FAERS Safety Report 6581738-7 (Version None)
Quarter: 2010Q1

REPORT INFORMATION
  Report Type: 
  Country: None (occurrence: None)
  Receive Date: 20100215
  Receipt Date: 20100201
  Transmission Date: 20100710
  Serious: Yes (Hospitalization, Other)
  Sender: FDA-Public Use
  Company Number: PHHY2010BR05730

PATIENT
  Sex: Female

DRUGS (6)
  1. DIOVAN AMLO FIX [Suspect]
     Indication: HYPERTENSION
     Dosage: 1 DF, QD (AT NIGHT)
     Route: 048
  2. HYDROCHLOROTHIAZIDE [Concomitant]
     Dosage: IN THE MORNING
  3. AMLODIPINE [Concomitant]
     Dosage: 5 MG IN THE LUNCH
  4. DAFLON (DIOSMIN) [Concomitant]
     Indication: VARICOSE VEIN
     Dosage: 500 MG
  5. GLUCOSAMINE SULFATE W/CHONDROITIN [Concomitant]
     Indication: BONE DISORDER
     Dosage: UNK
  6. SYNTHROID [Concomitant]
     Indication: THYROID DISORDER
     Dosage: 150 MG

REACTIONS (3)
  - SURGERY [None]
  - THYROIDECTOMY [None]
  - VARICOSE ULCERATION [None]
